FAERS Safety Report 13374559 (Version 1)
Quarter: 2017Q1

REPORT INFORMATION
  Report Type: Report from Study
  Country: None (occurrence: ES)
  Receive Date: 20170327
  Receipt Date: 20170327
  Transmission Date: 20170429
  Serious: Yes (Life-Threatening, Hospitalization)
  Sender: FDA-Public Use
  Company Number: ES-ABBVIE-17P-144-1917577-00

PATIENT
  Age: 45 Year
  Sex: Male

DRUGS (9)
  1. URSOBILANE [Concomitant]
     Indication: CHOLANGITIS SCLEROSING
     Route: 048
     Dates: start: 20090727
  2. HUMIRA [Suspect]
     Active Substance: ADALIMUMAB
     Route: 058
     Dates: start: 20150320
  3. EULITOP [Concomitant]
     Indication: HYPERTRIGLYCERIDAEMIA
     Route: 048
     Dates: start: 20160216
  4. CLIPPER [Concomitant]
     Active Substance: BECLOMETHASONE DIPROPIONATE
     Route: 048
     Dates: start: 20161212
  5. CLIPPER [Concomitant]
     Active Substance: BECLOMETHASONE DIPROPIONATE
     Indication: COLITIS ULCERATIVE
     Route: 048
     Dates: start: 20101103, end: 20110126
  6. INTESTIFALK [Concomitant]
     Indication: COLITIS ULCERATIVE
     Route: 054
     Dates: start: 20110309, end: 20110330
  7. INTESTIFALK [Concomitant]
     Route: 054
     Dates: start: 20160216
  8. HUMIRA [Suspect]
     Active Substance: ADALIMUMAB
     Indication: COLITIS ULCERATIVE
     Route: 058
     Dates: start: 20110830
  9. EUTIROX [Concomitant]
     Active Substance: LEVOTHYROXINE SODIUM
     Indication: HYPOTHYROIDISM
     Route: 048
     Dates: start: 19900715

REACTIONS (1)
  - Cholangitis sclerosing [Recovered/Resolved]

NARRATIVE: CASE EVENT DATE: 20170305
